FAERS Safety Report 9464928 (Version 2)
Quarter: 2013Q4

REPORT INFORMATION
  Report Type: Spontaneous
  Country: US (occurrence: US)
  Receive Date: 20130819
  Receipt Date: 20131002
  Transmission Date: 20140711
  Serious: No
  Sender: FDA-Public Use
  Company Number: US-TEVA-426419USA

PATIENT
  Age: 28 Year
  Sex: Female
  Weight: 84.44 kg

DRUGS (3)
  1. PARAGARD 380A [Suspect]
     Indication: CONTRACEPTION
     Route: 015
     Dates: start: 20130801, end: 20130808
  2. PARAGARD 380A [Suspect]
     Route: 015
     Dates: start: 20130809
  3. PRENATAL VITAMINS [Concomitant]

REACTIONS (3)
  - Dysmenorrhoea [Recovered/Resolved]
  - Device expulsion [Recovered/Resolved]
  - Abdominal pain [Recovered/Resolved]
